FAERS Safety Report 23680493 (Version 1)
Quarter: 2024Q1

REPORT INFORMATION
  Report Type: Spontaneous
  Country: JP (occurrence: JP)
  Receive Date: 20240328
  Receipt Date: 20240328
  Transmission Date: 20240410
  Serious: Yes (Hospitalization, Other)
  Sender: FDA-Public Use
  Company Number: JP-GLAXOSMITHKLINE-JP2024JPN038158

PATIENT

DRUGS (2)
  1. LAMICTAL [Suspect]
     Active Substance: LAMOTRIGINE
     Indication: Bipolar disorder
     Dosage: 150 MG/DAY, BID (50 MG BEFORE BREAKFAST AND 100 MG BEFORE DINNER)
  2. DEXTROMETHORPHAN HYDROBROMIDE [Suspect]
     Active Substance: DEXTROMETHORPHAN HYDROBROMIDE
     Dosage: 1800 MG (15 MG X 120 TABLETS)

REACTIONS (8)
  - Serotonin syndrome [Recovering/Resolving]
  - Altered state of consciousness [Recovering/Resolving]
  - Mydriasis [Recovering/Resolving]
  - Nystagmus [Recovering/Resolving]
  - Muscle tightness [Recovering/Resolving]
  - Agitation [Recovering/Resolving]
  - Tremor [Recovering/Resolving]
  - Intentional overdose [Unknown]
